FAERS Safety Report 4719980-X (Version None)
Quarter: 2005Q3

REPORT INFORMATION
  Report Type: 
  Country: None (occurrence: None)
  Receive Date: 20050721
  Receipt Date: 20050708
  Transmission Date: 20060218
  Serious: Yes (Hospitalization)
  Sender: FDA-Public Use
  Company Number: 2005GB01331

PATIENT

DRUGS (1)
  1. CRESTOR [Suspect]

REACTIONS (1)
  - NECROSIS [None]
